FAERS Safety Report 14176550 (Version 1)
Quarter: 2017Q4

REPORT INFORMATION
  Report Type: Report from Study
  Country: US (occurrence: US)
  Receive Date: 20171110
  Receipt Date: 20171110
  Transmission Date: 20180321
  Serious: No
  Sender: FDA-Public Use
  Company Number: PHEH2017US035411

PATIENT
  Sex: Female

DRUGS (1)
  1. COSENTYX [Suspect]
     Active Substance: SECUKINUMAB
     Indication: PRODUCT USED FOR UNKNOWN INDICATION
     Dosage: 300 MG (TWO PENS), QW
     Route: 058
     Dates: start: 20171027

REACTIONS (6)
  - Dysphagia [Unknown]
  - Arthropod bite [Recovered/Resolved]
  - Insomnia [Unknown]
  - Chest pain [Unknown]
  - Oropharyngeal pain [Unknown]
  - Malaise [Recovered/Resolved]
